FAERS Safety Report 7268066-1 (Version None)
Quarter: 2011Q1

REPORT INFORMATION
  Report Type: 
  Country: None (occurrence: None)
  Receive Date: 20110201
  Receipt Date: 20110131
  Transmission Date: 20110831
  Serious: No
  Sender: FDA-Public Use
  Company Number: US-PFIZER INC-2011022363

PATIENT
  Sex: Female
  Weight: 59.864 kg

DRUGS (1)
  1. FLAGYL [Suspect]
     Indication: SKIN INFECTION
     Dosage: 500 MG, 3X/DAY
     Route: 048
     Dates: start: 20110107, end: 20110110

REACTIONS (1)
  - URTICARIA [None]
